FAERS Safety Report 4627087-5 (Version None)
Quarter: 2005Q1

REPORT INFORMATION
  Report Type: 
  Country: None (occurrence: None)
  Receive Date: 20050331
  Receipt Date: 20041005
  Transmission Date: 20050727
  Serious: No
  Sender: FDA-Public Use
  Company Number: WAES 0410USA01397

PATIENT

DRUGS (1)
  1. VYTORIN [Suspect]
     Dosage: PO
     Route: 048
     Dates: start: 20040101, end: 20040101

REACTIONS (2)
  - VISUAL ACUITY REDUCED [None]
  - VISUAL DISTURBANCE [None]
